FAERS Safety Report 14211728 (Version 1)
Quarter: 2017Q4

REPORT INFORMATION
  Report Type: Spontaneous
  Country: US (occurrence: US)
  Receive Date: 20171122
  Receipt Date: 20171122
  Transmission Date: 20180321
  Serious: No
  Sender: FDA-Public Use
  Company Number: US-SHIRE-US201728144

PATIENT

DRUGS (1)
  1. XIIDRA [Suspect]
     Active Substance: LIFITEGRAST
     Indication: DRY EYE
     Route: 047

REACTIONS (6)
  - Instillation site discharge [Unknown]
  - Vision blurred [Unknown]
  - Instillation site reaction [Unknown]
  - Instillation site swelling [Unknown]
  - Product use complaint [Unknown]
  - Throat irritation [Unknown]
